FAERS Safety Report 8764917 (Version 2)
Quarter: 2013Q4

REPORT INFORMATION
  Report Type: Spontaneous
  Country: US (occurrence: US)
  Receive Date: 20120902
  Receipt Date: 20131101
  Transmission Date: 20140711
  Serious: No
  Sender: FDA-Public Use
  Company Number: US-009507513-1208USA011082

PATIENT
  Sex: Female

DRUGS (2)
  1. PEGINTRON [Suspect]
  2. VICTRELIS [Suspect]
     Route: 048

REACTIONS (2)
  - Lethargy [Recovered/Resolved]
  - Device malfunction [Recovered/Resolved]
